FAERS Safety Report 13737663 (Version 1)
Quarter: 2017Q3

REPORT INFORMATION
  Report Type: Report from Study
  Country: US (occurrence: US)
  Receive Date: 20170710
  Receipt Date: 20170710
  Transmission Date: 20171127
  Serious: Yes (Other)
  Sender: FDA-Public Use
  Company Number: US-SAOL THERAPEUTICS-2016SAO00409

PATIENT
  Age: 56 Year
  Sex: Female

DRUGS (8)
  1. CLONIDINE. [Suspect]
     Active Substance: CLONIDINE
     Dosage: 139.88 ?G, \DAY
     Route: 037
     Dates: start: 20160126, end: 20160309
  2. DILAUDID [Suspect]
     Active Substance: HYDROMORPHONE HYDROCHLORIDE
     Dosage: 3.1034 MG, \DAY
     Route: 037
     Dates: start: 20160309
  3. COMPOUNDED BACLOFEN [Suspect]
     Active Substance: BACLOFEN
     Indication: BONE PAIN
     Dosage: 139.88 ?G, \DAY
     Route: 037
     Dates: start: 20160126, end: 20160309
  4. DILAUDID [Suspect]
     Active Substance: HYDROMORPHONE HYDROCHLORIDE
     Dosage: 2.7977 MG, \DAY
     Route: 037
     Dates: start: 20160126, end: 20160309
  5. BUPIVACAINE. [Suspect]
     Active Substance: BUPIVACAINE
     Dosage: 9.31 MG, \DAY
     Route: 037
     Dates: start: 20160309
  6. CLONIDINE. [Suspect]
     Active Substance: CLONIDINE
     Dosage: 155.17 ?G, \DAY
     Route: 037
     Dates: start: 20160309
  7. BUPIVACAINE. [Suspect]
     Active Substance: BUPIVACAINE
     Dosage: 8.393 MG, \DAY
     Route: 037
     Dates: start: 20160126, end: 20160309
  8. COMPOUNDED BACLOFEN [Suspect]
     Active Substance: BACLOFEN
     Dosage: 155.17 ?G, \DAY
     Route: 037
     Dates: start: 20160309

REACTIONS (4)
  - Off label use [None]
  - Pain [Recovered/Resolved]
  - Cerebrospinal fluid leakage [Recovered/Resolved]
  - Blood pressure increased [Recovered/Resolved]

NARRATIVE: CASE EVENT DATE: 20160127
